FAERS Safety Report 8463929-3 (Version None)
Quarter: 2012Q2

REPORT INFORMATION
  Report Type: 
  Country: None (occurrence: None)
  Receive Date: 20120625
  Receipt Date: 20120613
  Transmission Date: 20120825
  Serious: Yes (Hospitalization)
  Sender: FDA-Public Use
  Company Number: US-ELI_LILLY_AND_COMPANY-US201204005166

PATIENT
  Sex: Female

DRUGS (19)
  1. ASPIRIN [Concomitant]
  2. CHLORACON [Concomitant]
  3. PLAVIX [Concomitant]
     Dosage: 75 MG, QD
  4. BENAZEPRIL HYDROCHLORIDE [Concomitant]
     Dosage: UNK, QD
  5. LUTEIN [Concomitant]
     Indication: EYE DISORDER
     Dosage: UNK
  6. METOPROLOL [Concomitant]
     Dosage: 25 MG, TID
  7. FORTEO [Suspect]
     Indication: OSTEOPOROSIS
     Dosage: 20 UG, QD
     Route: 065
     Dates: start: 20120413, end: 20120415
  8. AMLODIPINE [Concomitant]
  9. COQ10 [Concomitant]
     Dosage: 100 MG, QD
  10. PRAVASTATIN [Concomitant]
     Dosage: 20 MG, QD
  11. FISH OIL [Concomitant]
  12. AMOKSICILIN [Concomitant]
     Indication: NASOPHARYNGITIS
     Dosage: 500 MG, QD
  13. FORTEO [Suspect]
     Dosage: 20 UG, QD
     Route: 065
     Dates: start: 20120427
  14. POTASSIUM ACETATE [Concomitant]
     Dosage: 20 MEQ, QD
  15. LORAZEPAM [Concomitant]
  16. NIASPAN [Concomitant]
     Dosage: 500 MG, QD
  17. FLAGYL [Concomitant]
     Dosage: 250 MG, QD
  18. VITAMIN D [Concomitant]
  19. MAGNESIUM [Concomitant]
     Dosage: 600 MG, QD

REACTIONS (7)
  - HYPOTENSION [None]
  - NASOPHARYNGITIS [None]
  - DIZZINESS [None]
  - COLITIS ISCHAEMIC [None]
  - RASH [None]
  - DIARRHOEA [None]
  - RECTAL HAEMORRHAGE [None]
